FAERS Safety Report 26019947 (Version 1)
Quarter: 2025Q4

REPORT INFORMATION
  Report Type: Spontaneous
  Country: US (occurrence: US)
  Receive Date: 20251110
  Receipt Date: 20251110
  Transmission Date: 20260118
  Serious: No
  Sender: GALPHARM INTERNATIONAL
  Company Number: US-PERRIGO-25US002003

PATIENT
  Age: 45 Year
  Sex: Male
  Weight: 86.168 kg

DRUGS (1)
  1. POLYETHYLENE GLYCOL 3350 [Suspect]
     Active Substance: POLYETHYLENE GLYCOL 3350
     Indication: Intentional product misuse
     Dosage: 3 TEASPOONS, SINGLE
     Route: 048
     Dates: start: 20250210, end: 20250210

REACTIONS (5)
  - Abdominal discomfort [Recovered/Resolved]
  - Oral discomfort [Recovered/Resolved]
  - Eructation [Recovered/Resolved]
  - Nausea [Recovered/Resolved]
  - Product use in unapproved indication [Unknown]

NARRATIVE: CASE EVENT DATE: 20250210
